FAERS Safety Report 7476924-8 (Version None)
Quarter: 2011Q2

REPORT INFORMATION
  Report Type: 
  Country: None (occurrence: None)
  Receive Date: 20110512
  Receipt Date: 20110504
  Transmission Date: 20111010
  Serious: No
  Sender: FDA-Public Use
  Company Number: US-BAXTER-2011BH011709

PATIENT
  Age: 32 Month
  Sex: Male
  Weight: 13 kg

DRUGS (1)
  1. ADVATE [Suspect]
     Indication: PROPHYLAXIS
     Route: 042
     Dates: start: 20081014, end: 20110413

REACTIONS (3)
  - FATIGUE [None]
  - CHILLS [None]
  - PYREXIA [None]
